FAERS Safety Report 24970606 (Version 1)
Quarter: 2025Q1

REPORT INFORMATION
  Report Type: Report from Study
  Country: IN (occurrence: IN)
  Receive Date: 20250214
  Receipt Date: 20250214
  Transmission Date: 20250408
  Serious: Yes (Other)
  Sender: NOVARTIS
  Company Number: IN-002147023-NVSC2022IN041705

PATIENT
  Age: 63 Year
  Sex: Female

DRUGS (4)
  1. TASIGNA [Suspect]
     Active Substance: NILOTINIB
     Indication: Chronic myeloid leukaemia
     Dosage: 200 MG, BID
     Route: 048
     Dates: start: 20140728
  2. TASIGNA [Suspect]
     Active Substance: NILOTINIB
     Dosage: 200 MG, BID
     Route: 065
     Dates: start: 20220530
  3. TASIGNA [Suspect]
     Active Substance: NILOTINIB
     Dosage: 200 MG, BID
     Route: 065
     Dates: start: 20221107
  4. TASIGNA [Suspect]
     Active Substance: NILOTINIB
     Dosage: 200 MG, BID
     Route: 048
     Dates: start: 20230410

REACTIONS (13)
  - Bicytopenia [Unknown]
  - Hypothyroidism [Unknown]
  - Electrocardiogram QT prolonged [Unknown]
  - Pallor [Unknown]
  - Xanthelasma [Unknown]
  - Asthenia [Unknown]
  - Amylase increased [Unknown]
  - Blood cholesterol increased [Recovered/Resolved]
  - Headache [Unknown]
  - Product use issue [Unknown]
  - Hyperlipasaemia [Unknown]
  - Blood bilirubin increased [Unknown]
  - Transaminases increased [Unknown]

NARRATIVE: CASE EVENT DATE: 20210405
